FAERS Safety Report 15997120 (Version 2)
Quarter: 2020Q2

REPORT INFORMATION
  Report Type: Spontaneous
  Country: US (occurrence: US)
  Receive Date: 20190222
  Receipt Date: 20200417
  Transmission Date: 20200713
  Serious: No
  Sender: FDA-Public Use
  Company Number: US-SA-2019SA042701

PATIENT
  Age: 51 Year
  Sex: Female

DRUGS (2)
  1. DUPIXENT [Suspect]
     Active Substance: DUPILUMAB
     Indication: ECZEMA
     Dosage: 300 MG, QOW
     Route: 058
     Dates: start: 201711
  2. DUPIXENT [Suspect]
     Active Substance: DUPILUMAB
     Indication: DERMATITIS ATOPIC
     Dosage: 300 MG, QOW
     Route: 058
     Dates: start: 20200125

REACTIONS (4)
  - Dacryostenosis acquired [Not Recovered/Not Resolved]
  - Product dose omission [Unknown]
  - Ocular hyperaemia [Not Recovered/Not Resolved]
  - Eczema [Unknown]

NARRATIVE: CASE EVENT DATE: 201901
